FAERS Safety Report 6423989-8 (Version None)
Quarter: 2009Q4

REPORT INFORMATION
  Report Type: 
  Country: None (occurrence: None)
  Receive Date: 20091102
  Receipt Date: 20091029
  Transmission Date: 20100525
  Serious: Yes (Life-Threatening, Hospitalization)
  Sender: FDA-Public Use
  Company Number: PHHO2009IN13381

PATIENT
  Sex: Male
  Weight: 71 kg

DRUGS (3)
  1. ALISKIREN ALI+TAB+CF [Suspect]
     Indication: CARDIAC FAILURE ACUTE
     Dosage: BLINDED
     Route: 048
     Dates: start: 20090924, end: 20091029
  2. CARVEDILOL [Concomitant]
     Indication: CARDIAC FAILURE ACUTE
  3. LANOXIN [Concomitant]
     Indication: CARDIAC FAILURE ACUTE

REACTIONS (3)
  - CARDIAC FAILURE ACUTE [None]
  - DISEASE PROGRESSION [None]
  - HYPERKALAEMIA [None]
